FAERS Safety Report 23788960 (Version 1)
Quarter: 2024Q2

REPORT INFORMATION
  Report Type: Spontaneous
  Country: FR (occurrence: FR)
  Receive Date: 20240426
  Receipt Date: 20240426
  Transmission Date: 20240715
  Serious: Yes (Other)
  Sender: FDA-Public Use
  Company Number: FR-EXELTIS PHARMACEUTICAL HOLDING, S.L.-2404FR03316

PATIENT
  Age: 36 Year
  Sex: Female

DRUGS (1)
  1. DROSPIRENONE [Suspect]
     Active Substance: DROSPIRENONE
     Indication: Oral contraception
     Dosage: 4 MILLIGRAM, QD
     Route: 048
     Dates: start: 2023

REACTIONS (3)
  - Pregnancy on oral contraceptive [Recovered/Resolved]
  - Drug ineffective [Unknown]
  - Abortion spontaneous [Unknown]

NARRATIVE: CASE EVENT DATE: 20240416
